FAERS Safety Report 6966016-6 (Version None)
Quarter: 2010Q3

REPORT INFORMATION
  Report Type: 
  Country: None (occurrence: None)
  Receive Date: 20100903
  Receipt Date: 20100826
  Transmission Date: 20110219
  Serious: Yes (Other)
  Sender: FDA-Public Use
  Company Number: US-GENZYME-THYM-1001805

PATIENT
  Age: 18 Year
  Sex: Female

DRUGS (2)
  1. THYMOGLOBULIN [Suspect]
     Indication: PROPHYLAXIS AGAINST TRANSPLANT REJECTION
     Dosage: 1.5 MG/KG, UNK
     Route: 042
  2. METHYLPREDNISOLONE [Concomitant]
     Indication: PROPHYLAXIS AGAINST TRANSPLANT REJECTION
     Dosage: 500 MG, UNK
     Route: 042

REACTIONS (3)
  - RENAL ARTERY THROMBOSIS [None]
  - RENAL TUBULAR NECROSIS [None]
  - RENAL VEIN THROMBOSIS [None]
